FAERS Safety Report 11899149 (Version 4)
Quarter: 2016Q1

REPORT INFORMATION
  Report Type: Spontaneous
  Country: US (occurrence: US)
  Receive Date: 20160108
  Receipt Date: 20160224
  Transmission Date: 20160526
  Serious: Yes (Hospitalization, Other)
  Sender: FDA-Public Use
  Company Number: US-PFIZER INC-2016005341

PATIENT
  Age: 62 Year
  Sex: Female
  Weight: 72 kg

DRUGS (2)
  1. XELJANZ [Suspect]
     Active Substance: TOFACITINIB CITRATE
     Indication: RHEUMATOID ARTHRITIS
     Dosage: 5 MG, 2X/DAY
     Route: 048
     Dates: start: 20151202, end: 20151226
  2. XELJANZ [Suspect]
     Active Substance: TOFACITINIB CITRATE
     Dosage: UNK, 2X/DAY
     Route: 048
     Dates: start: 20151130

REACTIONS (3)
  - Road traffic accident [Recovering/Resolving]
  - Laceration [Unknown]
  - Rib fracture [Unknown]

NARRATIVE: CASE EVENT DATE: 20151227
